FAERS Safety Report 9764518 (Version 2)
Quarter: 2016Q2

REPORT INFORMATION
  Report Type: Report from Study
  Country: US (occurrence: US)
  Receive Date: 20131217
  Receipt Date: 20160602
  Transmission Date: 20160815
  Serious: Yes (Hospitalization)
  Sender: FDA-Public Use
  Company Number: US-ROCHE-1317862

PATIENT
  Sex: Female

DRUGS (12)
  1. INSULIN [Concomitant]
     Active Substance: INSULIN NOS
     Dosage: 11 UNITS AT NIGHT
     Route: 065
  2. AZITHROMYCIN ANHYDROUS. [Concomitant]
     Active Substance: AZITHROMYCIN ANHYDROUS
     Dosage: 3 TIMES A WEEK: MONDAYS, WEDNESDAYS, FRIDAYS
     Route: 065
  3. LANTUS [Concomitant]
     Active Substance: INSULIN GLARGINE
  4. PULMOZYME [Suspect]
     Active Substance: DORNASE ALFA
     Route: 065
  5. CREON 24 [Concomitant]
     Active Substance: AMYLASE\LIPASE\PROTEASE
     Dosage: TAKE 2 TWICE A DAY WITH MEALS (6 TOTAL A DAY)
     Route: 065
  6. ALBUTEROL. [Concomitant]
     Active Substance: ALBUTEROL
     Dosage: ^2 PUFFS 2-4 HOURS WHEN NEEDED^
     Route: 065
  7. SYMBICORT [Concomitant]
     Active Substance: BUDESONIDE\FORMOTEROL FUMARATE DIHYDRATE
     Dosage: ^A PUFF AT NIGHT AND A PUFF IN THE MORNING^
     Route: 065
  8. BACTRIM [Suspect]
     Active Substance: SULFAMETHOXAZOLE\TRIMETHOPRIM
     Indication: PRODUCT USED FOR UNKNOWN INDICATION
     Route: 065
  9. BENADRYL [Concomitant]
     Active Substance: DIPHENHYDRAMINE HYDROCHLORIDE
     Dosage: (INTENDED TO START WHEN CIPRO STARTED TODAY)
     Route: 065
     Dates: start: 20131210
  10. PULMOZYME [Suspect]
     Active Substance: DORNASE ALFA
     Indication: CYSTIC FIBROSIS
     Dosage: MOST RECENT DOSE ON 09/DEC/2013.
     Route: 065
  11. URSODIOL. [Concomitant]
     Active Substance: URSODIOL
     Dosage: ^2 A DAY^
     Route: 065
  12. NOVOLOG [Concomitant]
     Active Substance: INSULIN ASPART
     Dosage: ^1-2-3 UNITS^
     Route: 065

REACTIONS (15)
  - Vomiting [Unknown]
  - Lung infection [Unknown]
  - Bronchitis [Unknown]
  - Bacterial infection [Unknown]
  - Cough [Unknown]
  - Dysphonia [Recovered/Resolved]
  - Diabetic cystopathy [Unknown]
  - Fatigue [Unknown]
  - Oropharyngeal pain [Recovered/Resolved]
  - Drug hypersensitivity [Unknown]
  - Blood glucose abnormal [Unknown]
  - Malaise [Unknown]
  - Haemoptysis [Unknown]
  - Dehydration [Unknown]
  - Burkholderia cepacia complex infection [Unknown]
